FAERS Safety Report 13382196 (Version 1)
Quarter: 2017Q1

REPORT INFORMATION
  Report Type: Spontaneous
  Country: BE (occurrence: BE)
  Receive Date: 20170329
  Receipt Date: 20170329
  Transmission Date: 20170429
  Serious: Yes (Other)
  Sender: FDA-Public Use
  Company Number: PHHY2017BE044658

PATIENT
  Age: 48 Year
  Sex: Female

DRUGS (2)
  1. DABRAFENIB [Concomitant]
     Active Substance: DABRAFENIB
     Indication: MALIGNANT MELANOMA STAGE IV
     Dosage: UNK
     Route: 065
  2. TRAMETINIB [Suspect]
     Active Substance: TRAMETINIB
     Indication: MALIGNANT MELANOMA STAGE IV
     Dosage: UNK
     Route: 065

REACTIONS (2)
  - Panniculitis lobular [Recovered/Resolved]
  - Skin mass [Recovered/Resolved]
